FAERS Safety Report 17591721 (Version 2)
Quarter: 2020Q2

REPORT INFORMATION
  Report Type: Spontaneous
  Country: DE (occurrence: DE)
  Receive Date: 20200327
  Receipt Date: 20200401
  Transmission Date: 20200713
  Serious: Yes (Hospitalization)
  Sender: FDA-Public Use
  Company Number: DE-MYLANLABS-2020M1032161

PATIENT
  Age: 85 Year
  Sex: Male

DRUGS (11)
  1. ASPIRIN. [Concomitant]
     Active Substance: ASPIRIN
     Dosage: (100 MG, 1-0-0-0)
  2. CANDESARTAN. [Concomitant]
     Active Substance: CANDESARTAN
     Dosage: (8 MG, 1-0-0-0)
  3. KALINOR                            /00031402/ [Concomitant]
     Active Substance: POTASSIUM CHLORIDE
     Dosage: UNK(4X WOCHE)
  4. LANTUS [Concomitant]
     Active Substance: INSULIN GLARGINE
     Dosage: (18 IE, 0-0-0-1)
     Route: 058
  5. METOPROLOL. [Suspect]
     Active Substance: METOPROLOL
     Indication: PRODUCT USED FOR UNKNOWN INDICATION
     Dosage: (47.5 MG, 2-0-1-0)
  6. FUROSEMID                          /00032601/ [Concomitant]
     Active Substance: FUROSEMIDE
     Dosage: (40 MG, 1-0-0-0)
  7. ISMN [Concomitant]
     Active Substance: ISOSORBIDE MONONITRATE
     Dosage: 50 MG, 1-0-0-0
  8. ATORVASTATIN [Concomitant]
     Active Substance: ATORVASTATIN
     Dosage: (60 MG, 0-0-1-0)
  9. SPIRONOLACTON [Concomitant]
     Active Substance: SPIRONOLACTONE
     Dosage: 50 MILLIGRAM(50 MG, 0.5-0-0-0)
  10. LEVOTHYROXINE SODIUM. [Concomitant]
     Active Substance: LEVOTHYROXINE SODIUM
     Dosage: (100 ?G, 1-0-0-0)
  11. NOVORAPID [Concomitant]
     Active Substance: INSULIN ASPART
     Dosage: UNK(6-5-4-0)
     Route: 058

REACTIONS (4)
  - Dyspnoea [Unknown]
  - Scrotal swelling [Unknown]
  - Angina pectoris [Unknown]
  - Oedema peripheral [Unknown]
